FAERS Safety Report 6348120-9 (Version None)
Quarter: 2009Q3

REPORT INFORMATION
  Report Type: 
  Country: None (occurrence: None)
  Receive Date: 20090910
  Receipt Date: 20090901
  Transmission Date: 20100115
  Serious: Yes (Death, Other)
  Sender: FDA-Public Use
  Company Number: GB-AMGEN-UK359561

PATIENT
  Age: 60 Year
  Sex: Female

DRUGS (5)
  1. NEULASTA [Suspect]
     Indication: CHEMOTHERAPY
     Route: 065
  2. CHLORAMBUCIL [Concomitant]
     Route: 065
  3. VINBLASTINE [Concomitant]
     Route: 065
  4. PROCARBAZINE [Concomitant]
     Route: 065
  5. PREDNISOLONE [Concomitant]
     Route: 065

REACTIONS (3)
  - LICHENOID KERATOSIS [None]
  - NEOPLASM RECURRENCE [None]
  - SKIN DISCOLOURATION [None]
